FAERS Safety Report 8770712 (Version 1)
Quarter: 2012Q4

REPORT INFORMATION
  Report Type: 
  Country: AM (occurrence: AM)
  Receive Date: 20120906
  Receipt Date: 20120906
  Transmission Date: 20130627
  Serious: Yes (Hospitalization)
  Sender: FDA-Public Use
  Company Number: AM-009507513-1208ARM010804

PATIENT

DRUGS (2)
  1. SINGULAIR [Suspect]
     Indication: ASTHMA
     Dosage: UNK
     Route: 048
     Dates: start: 20120712, end: 201208
  2. SERETIDE [Suspect]
     Indication: ASTHMA
     Dosage: UNK
     Dates: start: 20120712

REACTIONS (5)
  - Bronchospasm [Unknown]
  - Condition aggravated [Unknown]
  - Nightmare [Unknown]
  - Vertigo [Unknown]
  - Anxiety [Unknown]
